FAERS Safety Report 10084747 (Version 1)
Quarter: 2014Q2

REPORT INFORMATION
  Report Type: Spontaneous
  Country: FR (occurrence: None)
  Receive Date: 20140414
  Receipt Date: 20140414
  Transmission Date: 20141212
  Serious: Yes (Hospitalization)
  Sender: FDA-Public Use
  Company Number: CLINIGEN-003327

PATIENT
  Age: 69 Year
  Sex: Female

DRUGS (1)
  1. FOSCAVIR (FOSCAVIR) [Suspect]
     Indication: CYTOMEGALOVIRUS INFECTION
     Route: 042
     Dates: start: 20140103, end: 20140117

REACTIONS (5)
  - Renal transplant [None]
  - Blood creatinine increased [None]
  - Medication error [None]
  - Accidental overdose [None]
  - Condition aggravated [None]
